FAERS Safety Report 7543915-8 (Version None)
Quarter: 2011Q2

REPORT INFORMATION
  Report Type: 
  Country: None (occurrence: None)
  Receive Date: 20110613
  Receipt Date: 20110607
  Transmission Date: 20111010
  Serious: Yes (Congenital Anomaly)
  Sender: FDA-Public Use
  Company Number: US-GILEAD-2010-0032314

PATIENT
  Sex: Female
  Weight: 2.69 kg

DRUGS (5)
  1. EFAVIRENZ [Suspect]
     Indication: HIV INFECTION
     Dates: start: 20060509, end: 20081116
  2. TRUVADA [Suspect]
     Indication: HIV INFECTION
     Dates: end: 20081117
  3. RITONAVIR [Concomitant]
     Indication: HIV INFECTION
     Dates: end: 20081116
  4. ATAZANAVIR [Concomitant]
     Indication: HIV INFECTION
     Dates: start: 20081117, end: 20090711
  5. EMTRIVA [Suspect]
     Indication: HIV INFECTION
     Dates: start: 20081117

REACTIONS (1)
  - VENTRICULAR SEPTAL DEFECT [None]
